FAERS Safety Report 8775981 (Version 2)
Quarter: 2012Q4

REPORT INFORMATION
  Report Type: 
  Country: FR (occurrence: FR)
  Receive Date: 20120910
  Receipt Date: 20120914
  Transmission Date: 20130627
  Serious: Yes (Death)
  Sender: FDA-Public Use
  Company Number: FR-B.I. PHARMACEUTICALS,INC./RIDGEFIELD-2012-FF-01199FF

PATIENT
  Age: 57 Year
  Sex: Male

DRUGS (5)
  1. PRADAXA [Suspect]
     Indication: ATRIAL FIBRILLATION
     Route: 048
     Dates: start: 201208
  2. COVERSYL [Concomitant]
     Indication: HYPERTENSION
     Dosage: 5 mg
     Dates: start: 2012
  3. MOTILIUM [Concomitant]
     Indication: NAUSEA
  4. DOLIPRANE [Concomitant]
     Indication: PAIN
  5. FLECAINE [Concomitant]
     Indication: ATRIAL FIBRILLATION

REACTIONS (3)
  - Haemorrhagic stroke [Fatal]
  - Headache [Fatal]
  - Loss of consciousness [Fatal]
